FAERS Safety Report 4627580-5 (Version None)
Quarter: 2005Q2

REPORT INFORMATION
  Report Type: 
  Country: None (occurrence: None)
  Receive Date: 20050405
  Receipt Date: 20050323
  Transmission Date: 20051028
  Serious: Yes (Other)
  Sender: FDA-Public Use
  Company Number: HQWYE336524MAR05

PATIENT

DRUGS (1)
  1. RAPAMUNE [Suspect]
     Indication: PROPHYLAXIS AGAINST TRANSPLANT REJECTION
     Dosage: LOADING DOSE THREE TIMES THE MAINTENANCE

REACTIONS (2)
  - PROTEINURIA [None]
  - URINE PROTEIN/CREATININE RATIO INCREASED [None]
